FAERS Safety Report 17550113 (Version 2)
Quarter: 2020Q2

REPORT INFORMATION
  Report Type: Spontaneous
  Country: US (occurrence: US)
  Receive Date: 20200317
  Receipt Date: 20200423
  Transmission Date: 20200713
  Serious: Yes (Other)
  Sender: FDA-Public Use
  Company Number: US-ACORDA-ACO_164216_2020

PATIENT
  Sex: Male
  Weight: 76.2 kg

DRUGS (3)
  1. AMPYRA [Suspect]
     Active Substance: DALFAMPRIDINE
     Indication: PRODUCT USED FOR UNKNOWN INDICATION
     Dosage: UNK
     Route: 065
  2. TYSABRI [Suspect]
     Active Substance: NATALIZUMAB
     Indication: MULTIPLE SCLEROSIS
     Dosage: INFUSED OVER 1 HOUR
     Route: 042
  3. GLATOPA [Suspect]
     Active Substance: GLATIRAMER ACETATE
     Indication: MULTIPLE SCLEROSIS
     Dosage: UNK
     Route: 065

REACTIONS (9)
  - Hemiplegia [Not Recovered/Not Resolved]
  - Depression [Unknown]
  - Dental caries [Unknown]
  - Sensory disturbance [Not Recovered/Not Resolved]
  - Alopecia [Unknown]
  - Hepatitis C [Not Recovered/Not Resolved]
  - Multiple sclerosis relapse [Unknown]
  - Anxiety [Unknown]
  - Injection site irritation [Unknown]
